FAERS Safety Report 6896731-4 (Version None)
Quarter: 2010Q3

REPORT INFORMATION
  Report Type: 
  Country: None (occurrence: None)
  Receive Date: 20100802
  Receipt Date: 20070131
  Transmission Date: 20110219
  Serious: No
  Sender: FDA-Public Use
  Company Number: US-PFIZER INC-2007010948

PATIENT
  Sex: Female
  Weight: 73.48 kg

DRUGS (7)
  1. LYRICA [Suspect]
     Indication: NEURALGIA
     Dates: start: 20061101
  2. LYRICA [Suspect]
     Indication: FIBROMYALGIA
  3. FOSAMAX [Concomitant]
  4. DARVOCET [Concomitant]
  5. CYMBALTA [Concomitant]
  6. CLONAZEPAM [Concomitant]
  7. LIPITOR [Concomitant]

REACTIONS (1)
  - EYE DISORDER [None]
